FAERS Safety Report 13743920 (Version 8)
Quarter: 2023Q1

REPORT INFORMATION
  Report Type: Spontaneous
  Country: FR (occurrence: FR)
  Receive Date: 20170712
  Receipt Date: 20230331
  Transmission Date: 20230417
  Serious: Yes (Hospitalization, Other)
  Sender: FDA-Public Use
  Company Number: FR-UCBSA-2017026730

PATIENT
  Age: 43 Year
  Sex: Male

DRUGS (85)
  1. KEPPRA [Suspect]
     Active Substance: LEVETIRACETAM
     Indication: Epilepsy
     Dosage: 500 MILLIGRAM, 2X/DAY (BID)
     Route: 048
     Dates: start: 20170422
  2. ACUPAN [Suspect]
     Active Substance: NEFOPAM HYDROCHLORIDE
     Indication: Pain
     Dosage: 20 MILLIGRAM, 4X/DAY (QID)
     Route: 042
     Dates: start: 2017, end: 2017
  3. ACUPAN [Suspect]
     Active Substance: NEFOPAM HYDROCHLORIDE
     Dosage: SI DOULEUR, 20 MG,Q6H
     Dates: start: 2017, end: 2017
  4. URSODIOL [Suspect]
     Active Substance: URSODIOL
     Indication: Product used for unknown indication
     Dosage: 200 MG
     Dates: start: 20170331
  5. PHLOROGLUCINOL [Suspect]
     Active Substance: PHLOROGLUCINOL
     Indication: Pain
     Dosage: 2 DF, AS NEEDED (TWO TABLETS THREE TIMES DAILY IF ABDOMINAL PAIN)
     Route: 048
     Dates: start: 2017, end: 2017
  6. PHLOROGLUCINOL [Suspect]
     Active Substance: PHLOROGLUCINOL
     Indication: Abdominal pain
     Dosage: 6 DOSAGE FORM, ONCE DAILY (QD)
     Route: 048
     Dates: start: 2017
  7. PHLOROGLUCINOL [Suspect]
     Active Substance: PHLOROGLUCINOL
     Dosage: 15 DOSAGE FORM ONCE DAILY (QD)
     Route: 048
  8. PHLOROGLUCINOL [Suspect]
     Active Substance: PHLOROGLUCINOL
     Indication: Pain
     Dosage: 2 DF, AS NEEDED (TWO TABLETS THREE TIMES DAILY IF ABDOMINAL PAIN)
     Dates: start: 2017, end: 2017
  9. PHLOROGLUCINOL [Suspect]
     Active Substance: PHLOROGLUCINOL
     Indication: Abdominal pain
  10. PHLOROGLUCINOL\1,3,5-TRIMETHOXYBENZENE [Suspect]
     Active Substance: PHLOROGLUCINOL\1,3,5-TRIMETHOXYBENZENE
     Indication: Pain
     Dosage: 2 DF, Z SI DOULEUR ABDOMINALE
     Route: 048
     Dates: start: 2017, end: 2017
  11. PHLOROGLUCINOL\1,3,5-TRIMETHOXYBENZENE [Suspect]
     Active Substance: PHLOROGLUCINOL\1,3,5-TRIMETHOXYBENZENE
     Indication: Abdominal pain
     Dosage: 2 DOSAGE FORM
     Dates: start: 2017
  12. MAGNESIUM ALGINATE\SODIUM ALGINATE [Suspect]
     Active Substance: MAGNESIUM ALGINATE\SODIUM ALGINATE
     Indication: Gastrooesophageal reflux disease
     Dosage: 1 DOSAGE FORM 3X/DAY (TID)
     Dates: start: 2017
  13. ACETAMINOPHEN [Suspect]
     Active Substance: ACETAMINOPHEN
     Indication: Pain
     Dosage: 3 G, 1X/DAY (IF PAIN OR FEVER)
     Route: 048
     Dates: start: 2017, end: 2017
  14. ACETAMINOPHEN [Suspect]
     Active Substance: ACETAMINOPHEN
     Indication: Pyrexia
  15. CELLCEPT [Suspect]
     Active Substance: MYCOPHENOLATE MOFETIL
     Indication: Prophylaxis against transplant rejection
     Dosage: 1000 MG, 2X/DAY (BID)
     Route: 048
     Dates: start: 2017
  16. CELLCEPT [Suspect]
     Active Substance: MYCOPHENOLATE MOFETIL
     Dosage: 2000 MILLIGRAM, ONCE DAILY (QD)
     Route: 048
     Dates: start: 2017
  17. CALCIUM CARBONATE [Suspect]
     Active Substance: CALCIUM CARBONATE
     Indication: Gastrooesophageal reflux disease
     Dosage: 1 DF, 3X/DAY (TID) (AS NEEDED)
     Route: 048
     Dates: start: 2017, end: 2017
  18. VALACYCLOVIR HYDROCHLORIDE [Suspect]
     Active Substance: VALACYCLOVIR HYDROCHLORIDE
     Indication: Prophylaxis
     Dosage: NON COMMUNIQU?E
     Route: 048
     Dates: start: 20170504
  19. HYDROCORTISONE [Suspect]
     Active Substance: HYDROCORTISONE
     Indication: Product used for unknown indication
     Dosage: UNK
  20. HYDROCORTISONE [Suspect]
     Active Substance: HYDROCORTISONE
     Dosage: UNK
  21. LINEZOLID [Suspect]
     Active Substance: LINEZOLID
     Indication: Product used for unknown indication
     Dosage: 600 MG,Q12H
     Dates: start: 201703, end: 20170430
  22. LINEZOLID [Suspect]
     Active Substance: LINEZOLID
     Dosage: 600 MG Q12H
     Route: 042
     Dates: start: 201703, end: 20170430
  23. EUPANTOL [Suspect]
     Active Substance: PANTOPRAZOLE SODIUM
     Indication: Gastrooesophageal reflux disease
     Dosage: 40 MG,QD
     Route: 042
     Dates: start: 2017, end: 2017
  24. EUPANTOL [Suspect]
     Active Substance: PANTOPRAZOLE SODIUM
     Dosage: 600 MG, Q12H
     Route: 042
     Dates: end: 20170430
  25. SODIUM ALGINATE [Suspect]
     Active Substance: SODIUM ALGINATE
     Indication: Gastrooesophageal reflux disease
     Dosage: 1 DF, 3X/DAY (TID)
     Route: 048
     Dates: start: 2017
  26. SODIUM ALGINATE [Suspect]
     Active Substance: SODIUM ALGINATE
     Dosage: 1 DOSAGE FORM, Q8H
     Dates: start: 2017
  27. ACETAMINOPHEN [Suspect]
     Active Substance: ACETAMINOPHEN
     Indication: Pyrexia
     Dosage: UNK
  28. ACETAMINOPHEN [Suspect]
     Active Substance: ACETAMINOPHEN
     Dosage: UNK
  29. ACETAMINOPHEN [Suspect]
     Active Substance: ACETAMINOPHEN
     Dosage: UNK
  30. ACETAMINOPHEN [Suspect]
     Active Substance: ACETAMINOPHEN
  31. CANCIDAS [Suspect]
     Active Substance: CASPOFUNGIN ACETATE
     Indication: Fungal infection
     Dosage: 70 MG,QD
     Dates: start: 201703, end: 2017
  32. RACECADOTRIL [Suspect]
     Active Substance: RACECADOTRIL
     Indication: Diarrhoea
     Dosage: 600 MG, QD
     Route: 048
     Dates: start: 2017, end: 2017
  33. RACECADOTRIL [Suspect]
     Active Substance: RACECADOTRIL
     Dosage: 200 MILLIGRAM, ONCE DAILY (QD)
     Route: 048
     Dates: start: 2017
  34. RACECADOTRIL [Suspect]
     Active Substance: RACECADOTRIL
     Dosage: 200 MILLIGRAM TID
     Dates: start: 2017, end: 2017
  35. CILASTATIN SODIUM\IMIPENEM [Suspect]
     Active Substance: CILASTATIN SODIUM\IMIPENEM
     Indication: Product used for unknown indication
     Dosage: 500 MG, 3X/DAY (TID)
     Route: 042
     Dates: start: 201703, end: 20170403
  36. CILASTATIN SODIUM\IMIPENEM [Suspect]
     Active Substance: CILASTATIN SODIUM\IMIPENEM
     Dosage: 500 MG,Q8H
     Dates: start: 201703, end: 20170403
  37. NEORAL [Suspect]
     Active Substance: CYCLOSPORINE
     Indication: Prophylaxis against transplant rejection
     Dosage: 40 MG,BID
     Dates: start: 2017, end: 2017
  38. SOLU-MEDROL [Suspect]
     Active Substance: METHYLPREDNISOLONE SODIUM SUCCINATE
     Indication: Product used for unknown indication
     Dosage: 160 MG,QD
     Dates: start: 2017, end: 20170609
  39. DITROPAN [Suspect]
     Active Substance: OXYBUTYNIN CHLORIDE
     Indication: Product used for unknown indication
     Dosage: 5 MG,TID
     Route: 048
     Dates: start: 2017, end: 20170509
  40. AMIKACIN [Suspect]
     Active Substance: AMIKACIN
     Indication: Pain
     Dosage: 20 MILLIGRAM, 4X/DAY (QID)
     Route: 042
     Dates: start: 20170403, end: 20170408
  41. AMIKACIN [Suspect]
     Active Substance: AMIKACIN
     Indication: Product used for unknown indication
     Dosage: UNK
     Dates: start: 20170421, end: 20170424
  42. AMIKACIN [Suspect]
     Active Substance: AMIKACIN
     Dosage: 80 MILLIGRAM, ONCE DAILY (QD)
     Route: 042
     Dates: start: 20170526, end: 20170529
  43. AMIKACIN [Suspect]
     Active Substance: AMIKACIN
     Dosage: UNK
     Route: 042
     Dates: start: 20170607, end: 20170610
  44. AMIKACIN [Suspect]
     Active Substance: AMIKACIN
     Dosage: UNK
  45. ZERBAXA [Suspect]
     Active Substance: CEFTOLOZANE SULFATE\TAZOBACTAM SODIUM
     Indication: Cellulitis
     Dosage: 3 G QD
     Route: 042
     Dates: start: 20170331
  46. ZERBAXA [Suspect]
     Active Substance: CEFTOLOZANE SULFATE\TAZOBACTAM SODIUM
     Dosage: 3 G QD
     Dates: start: 20170331
  47. ZERBAXA [Suspect]
     Active Substance: CEFTOLOZANE SULFATE\TAZOBACTAM SODIUM
     Dosage: 3 G, QD
     Dates: start: 20170331
  48. URAPIDIL [Suspect]
     Active Substance: URAPIDIL
     Indication: Hypertension
     Dosage: 48 MG, QD, 48 MG, DAILY (2 MG PER HOUR)
     Route: 042
     Dates: start: 201703, end: 20170330
  49. URAPIDIL [Suspect]
     Active Substance: URAPIDIL
     Dosage: 40 MILLIGRAM, ONCE DAILY (QD)
     Route: 042
     Dates: start: 20170330
  50. URAPIDIL [Suspect]
     Active Substance: URAPIDIL
     Indication: Hypertension
     Dosage: 2 MILLIGRAM, HOURLY
     Dates: start: 201703, end: 20170330
  51. BACTRIM [Suspect]
     Active Substance: SULFAMETHOXAZOLE\TRIMETHOPRIM
     Indication: Pneumocystis jirovecii pneumonia
     Dosage: 800 MG,QD
     Route: 048
     Dates: start: 201703, end: 20170526
  52. AMINO ACIDS\DEXTROSE\ELECTROLYTES NOS\SOYBEAN OIL [Suspect]
     Active Substance: AMINO ACIDS\DEXTROSE\ELECTROLYTES NOS\SOYBEAN OIL
     Indication: Parenteral nutrition
     Dosage: 80 ML, 24D, QH
     Route: 042
     Dates: start: 2017, end: 2017
  53. AMINO ACIDS\DEXTROSE\ELECTROLYTES NOS\SOYBEAN OIL [Suspect]
     Active Substance: AMINO ACIDS\DEXTROSE\ELECTROLYTES NOS\SOYBEAN OIL
     Dosage: 80 ML 24D,QH
     Dates: start: 2017, end: 2017
  54. GANCICLOVIR [Suspect]
     Active Substance: GANCICLOVIR
     Indication: Prophylaxis
     Dosage: NON COMMUNIQU?E
     Dates: start: 20170330, end: 20170504
  55. MAGNESIUM ALGINATE [Suspect]
     Active Substance: MAGNESIUM ALGINATE
     Indication: Gastrooesophageal reflux disease
     Dosage: 1 DOSAGE FORM, 3X/DAY (TID)
     Route: 048
     Dates: start: 2017
  56. MAGNESIUM ALGINATE [Suspect]
     Active Substance: MAGNESIUM ALGINATE
     Dosage: 1 DF,TID
     Dates: start: 2017
  57. AMIKACIN [Suspect]
     Active Substance: AMIKACIN
     Indication: Pain
     Dosage: UNK
     Route: 042
     Dates: start: 20170526, end: 20170529
  58. AMIKACIN [Suspect]
     Active Substance: AMIKACIN
     Dosage: 20 MG, 4X/DAY
     Route: 042
     Dates: start: 20170403, end: 20170408
  59. AMIKACIN [Suspect]
     Active Substance: AMIKACIN
     Dosage: 80 MILLIGRAM, ONCE DAILY (QD)
     Dates: start: 20170526, end: 20170529
  60. AMIKACIN [Suspect]
     Active Substance: AMIKACIN
     Indication: Product used for unknown indication
     Dosage: UNK
     Dates: start: 20170403, end: 20170408
  61. AMIKACIN [Suspect]
     Active Substance: AMIKACIN
     Indication: Pain
     Dosage: UNK
     Dates: end: 20170610
  62. AMIKACIN [Suspect]
     Active Substance: AMIKACIN
     Dosage: 20 MG, 4X/DAY
     Dates: start: 20170403, end: 20170408
  63. GAVISCON REGULAR STRENGTH [Suspect]
     Active Substance: ALUMINUM HYDROXIDE\MAGNESIUM TRISILICATE
     Indication: Gastrooesophageal reflux disease
     Dosage: 3 DF, 3X/DAY  (IF NEEDED)
     Route: 048
     Dates: start: 2017, end: 2017
  64. GAVISCON REGULAR STRENGTH [Suspect]
     Active Substance: ALUMINUM HYDROXIDE\MAGNESIUM TRISILICATE
     Dosage: 1 DOSAGE FORM
     Route: 048
     Dates: start: 2017
  65. PHLOROGLUCINOL [Suspect]
     Active Substance: PHLOROGLUCINOL
     Indication: Abdominal pain
     Dosage: 2 DF, AS NEEDED (TWO TABLETS THREE TIMES DAILY IF ABDOMINAL PAIN)
     Route: 048
     Dates: start: 2017, end: 2017
  66. PHLOROGLUCINOL [Suspect]
     Active Substance: PHLOROGLUCINOL
     Indication: Pain
  67. MYCOPHENOLATE MOFETIL [Suspect]
     Active Substance: MYCOPHENOLATE MOFETIL
     Indication: Prophylaxis against transplant rejection
     Dosage: 1000 MG, BID, 1000 MG, 2X/DAY(ONE TABLET ONCE IN THE MORNING AND ONCE IN THE EVENING)
     Route: 048
     Dates: start: 2017
  68. URAPIDIL HYDROCHLORIDE [Suspect]
     Active Substance: URAPIDIL HYDROCHLORIDE
     Indication: Hypertension
     Dosage: 40 MG, QD
     Route: 042
     Dates: end: 20170330
  69. URAPIDIL HYDROCHLORIDE [Suspect]
     Active Substance: URAPIDIL HYDROCHLORIDE
     Dosage: 2 MG, QH
     Route: 042
     Dates: start: 201703, end: 20170330
  70. CELLCEPT [Suspect]
     Active Substance: MYCOPHENOLATE MOFETIL
     Indication: Prophylaxis against transplant rejection
     Dosage: 2000 MG, QD
     Dates: start: 2017
  71. ALGINIC ACID\ALUMINUM HYDROXIDE\MAGNESIUM TRISILICATE [Suspect]
     Active Substance: ALGINIC ACID\ALUMINUM HYDROXIDE\MAGNESIUM TRISILICATE
     Indication: Gastrooesophageal reflux disease
     Dosage: IF NECESSARY, 3 DF, QD/PRN
     Dates: start: 2017, end: 2017
  72. GAVISCON [Suspect]
     Active Substance: ALUMINUM HYDROXIDE\MAGNESIUM CARBONATE
     Indication: Gastrooesophageal reflux disease
     Dosage: 3 DF, QD/PRN
     Route: 048
     Dates: start: 2017, end: 2017
  73. GAVISCON [Suspect]
     Active Substance: ALUMINUM HYDROXIDE\MAGNESIUM CARBONATE
     Indication: Gastrooesophageal reflux disease
     Dosage: 3 DF, 3X/DAY  (IF NEEDED)
     Route: 048
     Dates: start: 2017, end: 2017
  74. POTASSIUM BICARBONATE\SODIUM ALGINATE [Suspect]
     Active Substance: POTASSIUM BICARBONATE\SODIUM ALGINATE
     Indication: Gastrooesophageal reflux disease
     Dosage: UNK UNK, TID
     Route: 048
     Dates: start: 2017
  75. PHLOROGLUCINOL\1,3,5-TRIMETHOXYBENZENE [Suspect]
     Active Substance: PHLOROGLUCINOL\1,3,5-TRIMETHOXYBENZENE
     Indication: Pain
     Dosage: 6 DF, QD
     Route: 048
     Dates: start: 2017, end: 2017
  76. PHLOROGLUCINOL\1,3,5-TRIMETHOXYBENZENE [Suspect]
     Active Substance: PHLOROGLUCINOL\1,3,5-TRIMETHOXYBENZENE
     Indication: Pain
     Dosage: 15 DF, QD
     Dates: start: 2017, end: 2017
  77. MAGNESIUM ALGINATE\SODIUM ALGINATE [Suspect]
     Active Substance: MAGNESIUM ALGINATE\SODIUM ALGINATE
     Indication: Gastrooesophageal reflux disease
     Dosage: 1 DF,TID
     Route: 048
     Dates: start: 2017
  78. GAVISCON [Suspect]
     Active Substance: ALUMINUM HYDROXIDE\MAGNESIUM CARBONATE
     Indication: Gastrooesophageal reflux disease
     Dosage: 1 DF, Z
     Route: 048
     Dates: start: 2017
  79. TARGOCID [Concomitant]
     Active Substance: TEICOPLANIN
     Indication: Product used for unknown indication
     Dosage: UNK
     Dates: start: 20170524, end: 20170529
  80. RAMIPRIL [Concomitant]
     Active Substance: RAMIPRIL
     Indication: Prophylaxis against transplant rejection
     Dosage: 2000 MG, QD
     Route: 048
     Dates: start: 20170331
  81. ATOVAQUONE [Concomitant]
     Active Substance: ATOVAQUONE
     Indication: Product used for unknown indication
     Dosage: UNK
     Dates: start: 20170526
  82. AMLODIPINE BESYLATE [Concomitant]
     Active Substance: AMLODIPINE BESYLATE
     Indication: Epilepsy
     Dosage: 1000 MG, QD
     Route: 048
     Dates: start: 20170526, end: 20170531
  83. AMLODIPINE BESYLATE [Concomitant]
     Active Substance: AMLODIPINE BESYLATE
     Dosage: 1000 MILLIGRAM, ONCE DAILY (QD)
  84. BISOPROLOL [Concomitant]
     Active Substance: BISOPROLOL
     Indication: Prophylaxis
     Dosage: UNK
     Route: 048
     Dates: start: 20170531
  85. VANCOMYCIN [Concomitant]
     Active Substance: VANCOMYCIN
     Indication: Product used for unknown indication
     Dosage: UNK
     Dates: start: 20170529

REACTIONS (5)
  - Confusional state [Recovering/Resolving]
  - Amnesia [Recovering/Resolving]
  - Pancytopenia [Recovered/Resolved]
  - Pneumocystis jirovecii pneumonia [Unknown]
  - Cellulitis [Unknown]

NARRATIVE: CASE EVENT DATE: 20170329
